FAERS Safety Report 26174900 (Version 1)
Quarter: 2025Q4

REPORT INFORMATION
  Report Type: Spontaneous
  Country: CN (occurrence: CN)
  Receive Date: 20251218
  Receipt Date: 20251218
  Transmission Date: 20260117
  Serious: Yes (Life-Threatening)
  Sender: BAYER HEALTHCARE PHARMACEUTICALS INC.
  Company Number: CN-BAYER-2025A165604

PATIENT
  Age: 90 Year
  Sex: Male
  Weight: 60 kg

DRUGS (1)
  1. AVELOX [Suspect]
     Active Substance: MOXIFLOXACIN HYDROCHLORIDE
     Indication: Pneumonia legionella
     Dosage: 0.4 G, QD
     Route: 041
     Dates: start: 20251212, end: 20251214

REACTIONS (7)
  - Toxicity to various agents [Recovering/Resolving]
  - Dementia [Recovering/Resolving]
  - Persecutory delusion [Recovering/Resolving]
  - Dysphoria [Recovering/Resolving]
  - Repetitive speech [Recovering/Resolving]
  - Product use in unapproved indication [None]
  - Product prescribing issue [None]

NARRATIVE: CASE EVENT DATE: 20251212
